FAERS Safety Report 8980701 (Version 1)
Quarter: 2012Q4

REPORT INFORMATION
  Report Type: 
  Country: CH (occurrence: CH)
  Receive Date: 20121221
  Receipt Date: 20121221
  Transmission Date: 20130627
  Serious: Yes (Hospitalization)
  Sender: FDA-Public Use
  Company Number: US-009507513-1006USA02524

PATIENT
  Age: 42 Year
  Sex: Male

DRUGS (6)
  1. JANUVIA [Suspect]
     Dosage: 25 mg, qd
     Route: 048
     Dates: start: 201004, end: 20100520
  2. JANUVIA [Suspect]
     Dosage: 25 mg, qd
     Route: 048
     Dates: start: 20100528
  3. RIMACTAZID [Suspect]
     Indication: DISSEMINATED TUBERCULOSIS
     Dosage: 5x 150 mg daily
     Route: 048
     Dates: start: 201004
  4. NEXIUM [Suspect]
     Indication: DUODENAL ULCER
     Dosage: 40 mg, qd
     Route: 048
  5. PREDNISONE [Concomitant]
     Indication: KIDNEY TRANSPLANT REJECTION
  6. TORSEMIDE [Concomitant]
     Dosage: 100 mg, UNK

REACTIONS (6)
  - Haemodialysis [Not Recovered/Not Resolved]
  - Hyperkalaemia [Not Recovered/Not Resolved]
  - Electrolyte imbalance [Not Recovered/Not Resolved]
  - Catheter placement [Not Recovered/Not Resolved]
  - Renal failure acute [Not Recovered/Not Resolved]
  - Metabolic acidosis [Not Recovered/Not Resolved]
